FAERS Safety Report 6327425-1 (Version None)
Quarter: 2009Q3

REPORT INFORMATION
  Report Type: 
  Country: None (occurrence: None)
  Receive Date: 20090825
  Receipt Date: 20090814
  Transmission Date: 20100115
  Serious: Yes (Congenital Anomaly)
  Sender: FDA-Public Use
  Company Number: CH-PFIZER INC-2009254873

PATIENT

DRUGS (5)
  1. XANAX [Suspect]
     Indication: ANXIETY DISORDER
     Dosage: 0.25 MG, 3X/DAY
     Route: 064
     Dates: start: 20080603, end: 20080707
  2. ZOLOFT [Suspect]
     Indication: AFFECTIVE DISORDER
     Dosage: 50 MG, 1X/DAY
     Route: 064
     Dates: start: 20080603, end: 20080705
  3. DEROXAT [Suspect]
     Indication: AFFECTIVE DISORDER
     Dosage: 20 MG, UNK
     Route: 064
     Dates: start: 20080610, end: 20080617
  4. PRAVASTATIN SODIUM [Suspect]
     Dosage: 20 MG, 1X/DAY
     Route: 064
     Dates: start: 20080601, end: 20080601
  5. TEMESTA [Suspect]
     Indication: ANXIETY DISORDER
     Dosage: 2.5 MG, 3X/DAY
     Route: 064
     Dates: start: 20080701, end: 20080707

REACTIONS (2)
  - DRUG EXPOSURE DURING PREGNANCY [None]
  - HAEMANGIOMA CONGENITAL [None]
